FAERS Safety Report 4807065-3 (Version None)
Quarter: 2005Q4

REPORT INFORMATION
  Report Type: 
  Country: None (occurrence: None)
  Receive Date: 20051019
  Receipt Date: 20051007
  Transmission Date: 20060501
  Serious: Yes (Life-Threatening, Hospitalization)
  Sender: FDA-Public Use
  Company Number: 2005-10-0286

PATIENT
  Age: 78 Year
  Sex: Male

DRUGS (4)
  1. NITRO-DUR [Suspect]
     Dosage: TRANSDERMAL
     Route: 062
  2. RISPERDAL [Suspect]
     Indication: SCHIZOPHRENIA
     Dosage: 6 MG BID ORAL
     Route: 048
  3. ARTANE [Suspect]
     Indication: ESSENTIAL HYPERTENSION
     Dosage: 5 MG QD ORAL
     Route: 048
  4. VALSARTAN CAPSULES [Suspect]
     Indication: ESSENTIAL HYPERTENSION
     Dosage: 160 MG QD ORAL
     Route: 048

REACTIONS (1)
  - CEREBROVASCULAR DISORDER [None]
